FAERS Safety Report 9147047 (Version 1)
Quarter: 2013Q1

REPORT INFORMATION
  Report Type: Spontaneous
  Country: SA (occurrence: None)
  Receive Date: 20130219
  Receipt Date: 20130219
  Transmission Date: 20140127
  Serious: Yes (Death, Other)
  Sender: FDA-Public Use
  Company Number: SA-ALKEM-000010

PATIENT
  Age: 16 Year
  Sex: Female

DRUGS (5)
  1. MYCOPHENOLATE MOFETIL (MYCOPHENOLATE MOFETIL) [Suspect]
     Indication: RENAL TRANSPLANT
     Dosage: 12.0HOURS/
  2. TACROLIMUS (TACROLIMUS) [Suspect]
     Indication: RENAL TRANSPLANT
     Dosage: 12.O HOURS/
     Dates: end: 20120226
  3. PREDNISOLONE (PREDNISOLONE) [Suspect]
     Indication: RENAL TRANSPLANT
  4. VALGANCICLOVIR (VALGANCICLOVIR) [Concomitant]
  5. TRIMETHOPRIM SULFAMETHOXAZOLE (TRIMETHIORIM SULFAMETHOXAZOLE) [Concomitant]

REACTIONS (9)
  - Upper respiratory tract infection [None]
  - Pseudomonas infection [None]
  - Escherichia infection [None]
  - Blood disorder [None]
  - Escherichia urinary tract infection [None]
  - Thrombotic thrombocytopenic purpura [None]
  - Renal tubular necrosis [None]
  - Cytomegalovirus infection [None]
  - Cardiac arrest [None]
